FAERS Safety Report 10314425 (Version 1)
Quarter: 2014Q3

REPORT INFORMATION
  Report Type: Spontaneous
  Country: US (occurrence: US)
  Receive Date: 20140718
  Receipt Date: 20140718
  Transmission Date: 20150326
  Serious: No
  Sender: FDA-Public Use
  Company Number: US-ASTRAZENECA-2014SE49426

PATIENT
  Age: 25814 Day
  Sex: Male
  Weight: 68 kg

DRUGS (4)
  1. PULMICORT FLEXHALER [Suspect]
     Active Substance: BUDESONIDE
     Indication: INCREASED UPPER AIRWAY SECRETION
     Dosage: 180 MCG, 2 PUFFS BID
     Route: 055
     Dates: start: 20140707
  2. PULMICORT FLEXHALER [Suspect]
     Active Substance: BUDESONIDE
     Indication: COUGH
     Dosage: 180 MCG, 2 PUFFS BID
     Route: 055
     Dates: start: 20140707
  3. CARDIZEM [Concomitant]
     Active Substance: DILTIAZEM HYDROCHLORIDE
     Indication: BLOOD PRESSURE ABNORMAL
     Route: 048
  4. TERAZOSIN [Concomitant]
     Active Substance: TERAZOSIN\TERAZOSIN HYDROCHLORIDE
     Indication: BLOOD PRESSURE ABNORMAL
     Dosage: 10 MG AT NIGHT DAILY
     Route: 048
     Dates: start: 2009

REACTIONS (5)
  - Flushing [Unknown]
  - Off label use [Unknown]
  - Malaise [Unknown]
  - Feeling abnormal [Unknown]
  - Incorrect dose administered [Unknown]

NARRATIVE: CASE EVENT DATE: 20140707
